FAERS Safety Report 5428076-3 (Version None)
Quarter: 2007Q3

REPORT INFORMATION
  Report Type: 
  Country: None (occurrence: None)
  Receive Date: 20070828
  Receipt Date: 20070816
  Transmission Date: 20080115
  Serious: Yes (Death, Life-Threatening, Hospitalization)
  Sender: FDA-Public Use
  Company Number: US-GENENTECH-246260

PATIENT
  Sex: Male
  Weight: 61.4 kg

DRUGS (2)
  1. BEVACIZUMAB [Suspect]
     Indication: NON-SMALL CELL LUNG CANCER
     Dosage: 15 MG/KG, Q3W
     Route: 065
     Dates: start: 20051221
  2. PEMETREXED [Concomitant]
     Indication: NON-SMALL CELL LUNG CANCER
     Dosage: 500 MG/KG, Q3W
     Dates: start: 20051221

REACTIONS (3)
  - MYOCARDIAL INFARCTION [None]
  - MYOCARDITIS [None]
  - PYREXIA [None]
